FAERS Safety Report 5713389-8 (Version None)
Quarter: 2008Q2

REPORT INFORMATION
  Report Type: 
  Country: None (occurrence: None)
  Receive Date: 20080422
  Receipt Date: 20080410
  Transmission Date: 20081010
  Serious: Yes (Death)
  Sender: FDA-Public Use
  Company Number: JP-PFIZER INC-2008030216

PATIENT
  Sex: Male
  Weight: 50 kg

DRUGS (4)
  1. ZYVOX [Suspect]
     Indication: STAPHYLOCOCCAL INFECTION
     Route: 042
     Dates: start: 20070926, end: 20071006
  2. TARGOCID [Concomitant]
     Route: 042
  3. DALACIN-S [Concomitant]
     Route: 042
  4. PAZUCROSS [Concomitant]
     Route: 042

REACTIONS (2)
  - MULTI-ORGAN FAILURE [None]
  - SEPTIC SHOCK [None]
